FAERS Safety Report 5072508-X (Version None)
Quarter: 2006Q3

REPORT INFORMATION
  Report Type: 
  Country: None (occurrence: None)
  Receive Date: 20060807
  Receipt Date: 20060727
  Transmission Date: 20061208
  Serious: Yes (Death)
  Sender: FDA-Public Use
  Company Number: DE-MERCK-0607DEU00205

PATIENT
  Sex: Female

DRUGS (5)
  1. AGGRASTAT [Suspect]
     Indication: CORONARY ANGIOPLASTY
     Route: 042
  2. HEPARIN [Concomitant]
     Route: 042
  3. HEPARIN [Concomitant]
     Route: 042
  4. ASPISOL [Concomitant]
     Route: 065
  5. CLOPIDOGREL BISULFATE [Concomitant]
     Route: 065

REACTIONS (4)
  - ANAEMIA [None]
  - HYPOTENSION [None]
  - OVERDOSE [None]
  - SHOCK HAEMORRHAGIC [None]
